FAERS Safety Report 5097322-0 (Version None)
Quarter: 2006Q3

REPORT INFORMATION
  Report Type: 
  Country: None (occurrence: None)
  Receive Date: 20060906
  Receipt Date: 20060424
  Transmission Date: 20061208
  Serious: Yes (Hospitalization)
  Sender: FDA-Public Use
  Company Number: 443943

PATIENT
  Age: 83 Year
  Sex: Male

DRUGS (10)
  1. KREDEX [Suspect]
     Dosage: 12.5MG TWICE PER DAY
     Route: 048
  2. ADANCOR [Suspect]
     Indication: ANGINA PECTORIS
     Dosage: 10MG TWICE PER DAY
     Route: 048
  3. COVERSYL [Suspect]
     Indication: ANGINA PECTORIS
     Dosage: 2MG PER DAY
     Route: 048
     Dates: end: 20060218
  4. CORVASAL [Suspect]
     Indication: ANGINA PECTORIS
     Dosage: 2MG PER DAY
     Route: 048
     Dates: end: 20060219
  5. TARDYFERON [Concomitant]
     Route: 065
  6. PARACETAMOL [Concomitant]
     Route: 065
  7. MOVICOL [Concomitant]
     Route: 065
  8. NEXIUM [Concomitant]
  9. PLAVIX [Concomitant]
  10. CORDARONE [Concomitant]

REACTIONS (11)
  - ANOREXIA [None]
  - ASTHENIA [None]
  - DIZZINESS [None]
  - DRUG INTERACTION [None]
  - FALL [None]
  - GASTRIC CANCER [None]
  - GENERAL PHYSICAL HEALTH DETERIORATION [None]
  - HAEMATOMA [None]
  - ORTHOSTATIC HYPOTENSION [None]
  - VERTIGO [None]
  - WEIGHT DECREASED [None]
